FAERS Safety Report 7196720 (Version 4)
Quarter: 2015Q4

REPORT INFORMATION
  Report Type: Spontaneous
  Country: US (occurrence: US)
  Receive Date: 20091202
  Receipt Date: 20151023
  Transmission Date: 20160305
  Serious: Yes (Hospitalization)
  Sender: FDA-Public Use
  Company Number: US-BAYER-200941035NA

PATIENT
  Age: 28 Year
  Sex: Female
  Weight: 78.64 kg

DRUGS (6)
  1. METFORMIN [Concomitant]
     Active Substance: METFORMIN HYDROCHLORIDE
     Indication: POLYCYSTIC OVARIES
     Dates: start: 200603
  2. YASMIN [Suspect]
     Active Substance: DROSPIRENONE\ETHINYL ESTRADIOL
     Dosage: UNK
     Dates: start: 20070911
  3. GLUCOPHAGE [Concomitant]
     Active Substance: METFORMIN HYDROCHLORIDE
     Indication: POLYCYSTIC OVARIES
     Dates: start: 200706
  4. CABERGOLINE. [Concomitant]
     Active Substance: CABERGOLINE
     Dosage: 0.5 MG, UNK
     Dates: start: 20070912
  5. SPIRONOLACTONE. [Concomitant]
     Active Substance: SPIRONOLACTONE
     Indication: POLYCYSTIC OVARIES
     Dates: start: 200806
  6. YASMIN [Suspect]
     Active Substance: DROSPIRENONE\ETHINYL ESTRADIOL
     Dosage: UNK UNK, QD
     Route: 048
     Dates: start: 20060831, end: 20071110

REACTIONS (4)
  - Pain in extremity [Recovering/Resolving]
  - Deep vein thrombosis [Recovering/Resolving]
  - Erythema [Recovering/Resolving]
  - Peripheral swelling [Recovering/Resolving]

NARRATIVE: CASE EVENT DATE: 20071110
